FAERS Safety Report 10929147 (Version 2)
Quarter: 2015Q2

REPORT INFORMATION
  Report Type: Spontaneous
  Country: US (occurrence: US)
  Receive Date: 20150319
  Receipt Date: 20150524
  Transmission Date: 20150821
  Serious: No
  Sender: FDA-Public Use
  Company Number: US-JNJFOC-20140611913

PATIENT
  Sex: Male
  Weight: 46.27 kg

DRUGS (1)
  1. WATSON METHYLPHENIDATE HYDROCHLORIDE [Suspect]
     Active Substance: METHYLPHENIDATE HYDROCHLORIDE
     Indication: ATTENTION DEFICIT/HYPERACTIVITY DISORDER
     Dosage: 36MG FOR SCHOOL DAYS AND 27MG FOR??NON-SCHOOL DAYS
     Route: 048
     Dates: start: 2011, end: 2011

REACTIONS (3)
  - Pain [Unknown]
  - Decreased appetite [Unknown]
  - Insomnia [Unknown]

NARRATIVE: CASE EVENT DATE: 2011
